FAERS Safety Report 19681413 (Version 1)
Quarter: 2021Q3

REPORT INFORMATION
  Report Type: Spontaneous
  Country: US (occurrence: US)
  Receive Date: 20210810
  Receipt Date: 20210810
  Transmission Date: 20211014
  Serious: Yes (Other)
  Sender: FDA-Public Use
  Company Number: US-IGSA-BIG0014094

PATIENT
  Sex: Male
  Weight: 106 kg

DRUGS (6)
  1. TYLENOL [Concomitant]
     Active Substance: ACETAMINOPHEN
     Indication: PREMEDICATION
     Dosage: 650 MILLIGRAM, SINGLE
     Route: 048
     Dates: start: 20210129, end: 20210129
  2. GAMUNEX?C [Suspect]
     Active Substance: HUMAN IMMUNOGLOBULIN G
     Dosage: 65 GRAM, TOTAL
     Route: 042
     Dates: start: 20210128, end: 20210128
  3. BENADRYL [Concomitant]
     Active Substance: DIPHENHYDRAMINE HYDROCHLORIDE
     Indication: PREMEDICATION
     Dosage: 25 MILLIGRAM, SINGLE
     Route: 048
     Dates: start: 20210129, end: 20210129
  4. PEPCID [Concomitant]
     Active Substance: FAMOTIDINE
     Indication: PREMEDICATION
     Dosage: 20 MILLIGRAM, SINGLE
     Route: 042
     Dates: start: 20210129, end: 20210129
  5. GAMUNEX?C [Suspect]
     Active Substance: HUMAN IMMUNOGLOBULIN G
     Dosage: UNK
  6. GAMUNEX?C [Suspect]
     Active Substance: HUMAN IMMUNOGLOBULIN G
     Indication: MYASTHENIA GRAVIS
     Dosage: 65 GRAM, TOTAL
     Route: 042
     Dates: start: 20210129, end: 20210129

REACTIONS (3)
  - Urticaria [Recovering/Resolving]
  - Rash erythematous [Recovering/Resolving]
  - Lip swelling [Recovering/Resolving]

NARRATIVE: CASE EVENT DATE: 20210129
